FAERS Safety Report 8344553 (Version 4)
Quarter: 2013Q2

REPORT INFORMATION
  Report Type: Spontaneous
  Country: US (occurrence: US)
  Receive Date: 20120119
  Receipt Date: 20130416
  Transmission Date: 20140414
  Serious: Yes (Hospitalization, Other)
  Sender: FDA-Public Use
  Company Number: US-ASTRAZENECA-2012SE02232

PATIENT
  Age: 72 Year
  Sex: Female

DRUGS (21)
  1. NEXIUM [Suspect]
     Indication: GASTROOESOPHAGEAL REFLUX DISEASE
     Route: 048
  2. NEXIUM [Suspect]
     Indication: ULCER
     Route: 048
  3. NEXIUM [Suspect]
     Indication: GASTROOESOPHAGEAL REFLUX DISEASE
     Route: 048
     Dates: start: 2013
  4. NEXIUM [Suspect]
     Indication: ULCER
     Route: 048
     Dates: start: 2013
  5. PRILOSEC OTC [Suspect]
     Indication: GASTROOESOPHAGEAL REFLUX DISEASE
     Route: 048
  6. PRILOSEC OTC [Suspect]
     Indication: ULCER
     Route: 048
  7. TAMBOCOR [Concomitant]
     Indication: CARDIAC DISORDER
     Route: 048
     Dates: start: 201209
  8. DICEM [Concomitant]
     Indication: CARDIAC DISORDER
     Route: 048
  9. METFORMIN [Concomitant]
     Indication: DIABETES MELLITUS
     Route: 048
  10. SINGULAR [Concomitant]
     Indication: DYSPNOEA
     Route: 048
  11. LASIX [Concomitant]
     Indication: CARDIAC FAILURE CONGESTIVE
     Route: 048
     Dates: start: 201209
  12. FLEXERIL [Concomitant]
     Indication: MUSCULOSKELETAL STIFFNESS
     Route: 048
  13. ATIVAN [Concomitant]
     Indication: SLEEP DISORDER
     Route: 048
  14. DOCUSATE [Concomitant]
     Indication: CONSTIPATION
     Route: 048
     Dates: start: 2012
  15. ADVAIR [Concomitant]
     Indication: EMPHYSEMA
     Route: 055
  16. PROVENTIL [Concomitant]
     Indication: EMPHYSEMA
     Dosage: PRN
     Route: 055
  17. NEBULIZING TREATMENT [Concomitant]
     Indication: DYSPNOEA
     Dosage: PRN
     Route: 055
     Dates: start: 1998
  18. LIPITOR [Concomitant]
     Indication: BLOOD CHOLESTEROL INCREASED
     Route: 048
  19. COUMADIN [Concomitant]
     Indication: ANTICOAGULANT THERAPY
     Route: 048
  20. COUMADIN [Concomitant]
     Indication: ANTICOAGULANT THERAPY
     Route: 048
  21. PERCOCET [Concomitant]
     Indication: NERVE INJURY
     Route: 048
     Dates: start: 2012

REACTIONS (19)
  - Cerebrovascular accident [Unknown]
  - Pneumonia [Unknown]
  - Asthma [Unknown]
  - White blood cell count increased [Unknown]
  - Cardiac failure congestive [Unknown]
  - Transient ischaemic attack [Unknown]
  - Gastrooesophageal reflux disease [Unknown]
  - Hernia [Unknown]
  - Dyspepsia [Unknown]
  - Multiple allergies [Unknown]
  - Sinus disorder [Unknown]
  - Bronchitis [Unknown]
  - Blood cholesterol increased [Unknown]
  - Nerve injury [Unknown]
  - Intervertebral disc protrusion [Unknown]
  - Asthenia [Unknown]
  - Sleep disorder [Unknown]
  - Constipation [Unknown]
  - Drug dose omission [Unknown]
